FAERS Safety Report 8999876 (Version 2)
Quarter: 2013Q1

REPORT INFORMATION
  Report Type: Spontaneous
  Country: IT (occurrence: IT)
  Receive Date: 20130102
  Receipt Date: 20130131
  Transmission Date: 20140127
  Serious: Yes (Hospitalization)
  Sender: FDA-Public Use
  Company Number: IT-SANOFI-AVENTIS-2012SA093913

PATIENT
  Age: 18 Month
  Sex: Male

DRUGS (2)
  1. CEFOTAXIME SODIUM [Suspect]
     Indication: OSTEOMYELITIS
     Route: 042
     Dates: start: 20121122, end: 20121215
  2. TEICOPLANIN [Concomitant]
     Dates: start: 20121122, end: 20121215

REACTIONS (4)
  - Lip oedema [Not Recovered/Not Resolved]
  - Conjunctivitis [Not Recovered/Not Resolved]
  - Face oedema [Not Recovered/Not Resolved]
  - Rash maculo-papular [Not Recovered/Not Resolved]
